FAERS Safety Report 9258084 (Version 2)
Quarter: 2013Q2

REPORT INFORMATION
  Report Type: Report from Study
  Country: US (occurrence: US)
  Receive Date: 20130426
  Receipt Date: 20130520
  Transmission Date: 20140414
  Serious: Yes (Hospitalization)
  Sender: FDA-Public Use
  Company Number: US-PURDUE-USA-2013-0101422

PATIENT
  Age: 64 Year
  Sex: Male
  Weight: 104.31 kg

DRUGS (1)
  1. OXYCONTIN (NDA 22-272) [Suspect]
     Indication: BACK PAIN
     Dosage: 60 MG, TID
     Route: 048
     Dates: start: 2007

REACTIONS (1)
  - Cardiac disorder [Recovered/Resolved]
